FAERS Safety Report 9358753 (Version 1)
Quarter: 2013Q2

REPORT INFORMATION
  Report Type: Spontaneous
  Country: US (occurrence: US)
  Receive Date: 20130620
  Receipt Date: 20130620
  Transmission Date: 20140414
  Serious: Yes (Hospitalization)
  Sender: FDA-Public Use
  Company Number: PHHY2013US062557

PATIENT
  Age: 19 Year
  Sex: Female

DRUGS (1)
  1. AMLODIPINE [Suspect]
     Dosage: 20 DF
     Route: 048

REACTIONS (9)
  - Metabolic acidosis [Recovered/Resolved]
  - Angioedema [Recovered/Resolved]
  - Dysphonia [Recovered/Resolved]
  - Lip oedema [Recovered/Resolved]
  - Palatal oedema [Recovered/Resolved]
  - Hypotension [Recovered/Resolved]
  - Sinus tachycardia [Recovered/Resolved]
  - Hyperglycaemia [Recovered/Resolved]
  - Intentional overdose [Recovered/Resolved]
